FAERS Safety Report 18252153 (Version 3)
Quarter: 2020Q3

REPORT INFORMATION
  Report Type: Spontaneous
  Country: US (occurrence: US)
  Receive Date: 20200910
  Receipt Date: 20200910
  Transmission Date: 20201103
  Serious: No
  Sender: FDA-Public Use
  Company Number: US-FARMAPROD-202004-0551

PATIENT
  Age: 72 Year
  Sex: Female

DRUGS (21)
  1. FLUOROMETHOLON [Concomitant]
     Active Substance: FLUOROMETHOLONE
  2. ACICLOVIR [Concomitant]
     Active Substance: ACYCLOVIR
  3. OXERVATE [Suspect]
     Active Substance: CENEGERMIN-BKBJ
     Dates: start: 202002, end: 20200521
  4. BIOTIN [Concomitant]
     Active Substance: BIOTIN
  5. SIMETHICONE (DIMETHICONE) [Concomitant]
     Active Substance: DIMETHICONE
  6. CALTRATE WITH VITAMIN D [Concomitant]
     Active Substance: CALCIUM CARBONATE\CHOLECALCIFEROL
  7. LANTUS [Concomitant]
     Active Substance: INSULIN GLARGINE
     Indication: DIABETES MELLITUS
  8. DORZOLAMIDE [Concomitant]
     Active Substance: DORZOLAMIDE
  9. MOXIFLOXACIN. [Concomitant]
     Active Substance: MOXIFLOXACIN
  10. PANTOTHENIC ACID [Concomitant]
     Active Substance: PANTOTHENIC ACID
  11. FEXOFENADINE [Concomitant]
     Active Substance: FEXOFENADINE HYDROCHLORIDE
  12. EYE LUBRIFICATING [Concomitant]
  13. HYDROLYSED COLLAGEN [Concomitant]
  14. METFORMIN [Concomitant]
     Active Substance: METFORMIN HYDROCHLORIDE
     Indication: DIABETES MELLITUS
  15. ACCUFLORA PROBIOTIC [Concomitant]
  16. TACROLIMUS. [Concomitant]
     Active Substance: TACROLIMUS
     Indication: GRAFT VERSUS HOST DISEASE
     Dosage: TWO TABLETS EVERY MORNING AND ONE TABLET EVERY EVENING
  17. HUMALOG [Concomitant]
     Active Substance: INSULIN LISPRO
     Indication: DIABETES MELLITUS
     Dosage: 3? 5 UNITS
  18. VITAMINE B?10 [Concomitant]
  19. LEVOTHYROXINE. [Concomitant]
     Active Substance: LEVOTHYROXINE
     Indication: HYPOTHYROIDISM
  20. VENLAFAXINE [Concomitant]
     Active Substance: VENLAFAXINE HYDROCHLORIDE
     Indication: DEPRESSION
  21. MAGNESIUM WITH ZINC [Concomitant]

REACTIONS (12)
  - Rhinorrhoea [Not Recovered/Not Resolved]
  - Toothache [Unknown]
  - Headache [Unknown]
  - Ocular hyperaemia [Recovered/Resolved]
  - Nasal congestion [Not Recovered/Not Resolved]
  - Eye pain [Recovered/Resolved]
  - Sinus pain [Not Recovered/Not Resolved]
  - Alopecia [Unknown]
  - Urinary tract infection [Not Recovered/Not Resolved]
  - Scab [Not Recovered/Not Resolved]
  - Oral pain [Unknown]
  - Dry skin [Unknown]

NARRATIVE: CASE EVENT DATE: 20200326
